FAERS Safety Report 6713412-8 (Version None)
Quarter: 2010Q2

REPORT INFORMATION
  Report Type: 
  Country: None (occurrence: None)
  Receive Date: 20100506
  Receipt Date: 20100427
  Transmission Date: 20101027
  Serious: Yes (Hospitalization)
  Sender: FDA-Public Use
  Company Number: US-TEVA-232760USA

PATIENT
  Sex: Female

DRUGS (4)
  1. LEUCOVORIN CALCIUM TABLET 5MG [Suspect]
     Indication: NEOPLASM
  2. FLUOROURACIL [Suspect]
  3. ABT-888 (VELIPARIB) [Suspect]
     Indication: NEOPLASM
  4. IRINOTECAN HYDROCHLORIDE [Suspect]
     Indication: NEOPLASM

REACTIONS (1)
  - SMALL INTESTINAL OBSTRUCTION [None]
